FAERS Safety Report 23665062 (Version 2)
Quarter: 2024Q2

REPORT INFORMATION
  Report Type: Spontaneous
  Country: US (occurrence: US)
  Receive Date: 20240322
  Receipt Date: 20240517
  Transmission Date: 20240716
  Serious: No
  Sender: FDA-Public Use
  Company Number: US-SA-SAC20240321000635

PATIENT
  Age: 51 Year
  Sex: Female
  Weight: 87.99 kg

DRUGS (4)
  1. DUPIXENT [Suspect]
     Active Substance: DUPILUMAB
     Indication: Dermatitis atopic
     Dosage: 300 MG, QOW
     Route: 058
     Dates: start: 202401
  2. ICATIBANT [Concomitant]
     Active Substance: ICATIBANT ACETATE
  3. ALBUTEROL SULFATE [Concomitant]
     Active Substance: ALBUTEROL SULFATE
  4. ONE A DAY WOMEN^S [ASCORBIC ACID;BETACAROTENE;BIOTIN;CALCIUM CARBONATE [Concomitant]

REACTIONS (1)
  - No adverse event [Unknown]
